FAERS Safety Report 14395140 (Version 9)
Quarter: 2019Q2

REPORT INFORMATION
  Report Type: Report from Study
  Country: CN (occurrence: CN)
  Receive Date: 20180116
  Receipt Date: 20190416
  Transmission Date: 20190711
  Serious: Yes (Hospitalization)
  Sender: FDA-Public Use
  Company Number: CN-EISAI MEDICAL RESEARCH-EC-2018-034961

PATIENT
  Age: 49 Year
  Sex: Male
  Weight: 58 kg

DRUGS (16)
  1. OMEPRAZOLE. [Concomitant]
     Active Substance: OMEPRAZOLE
  2. MEDIUM-CHAIN AND LONG-CHAIN TRIGLYCERIDES LIPID EMULSION [Concomitant]
  3. METRONIDAZOLE SODIUM CHLORDE [Concomitant]
  4. COMPOUNG DIGESTIVE ENZYME [Concomitant]
  5. SODIUM CHLORIDE. [Concomitant]
     Active Substance: SODIUM CHLORIDE
  6. OCTREOTIDE ACETATE. [Concomitant]
     Active Substance: OCTREOTIDE ACETATE
  7. CIPROFLOXACIN LACTATE [Concomitant]
     Active Substance: CIPROFLOXACIN LACTATE
  8. GLUTATHIONE [Concomitant]
     Active Substance: GLUTATHIONE
  9. SHENFU ZHUSHEYE/ZHIZHUKUANZHONG/ JINWEITAI JIAONANG/ YUAN HU ZHI TONG/ [Concomitant]
  10. DICLOFENAC SODIUM. [Concomitant]
     Active Substance: DICLOFENAC SODIUM
  11. MOSAPRIDE CITRATE [Concomitant]
     Active Substance: MOSAPRIDE CITRATE
  12. LENVATINIB [Suspect]
     Active Substance: LENVATINIB
     Indication: THYROID CANCER
     Route: 048
     Dates: start: 20170512, end: 20180108
  13. LENVATINIB [Suspect]
     Active Substance: LENVATINIB
     Route: 048
     Dates: start: 20180117, end: 20180814
  14. DYCLONINE HYDROCHLORIDE MUCLAGE [Concomitant]
  15. PHLOROGLUCINOL [Concomitant]
     Active Substance: PHLOROGLUCINOL
  16. LEVOFLOXACIN LACTATE [Concomitant]
     Active Substance: LEVOFLOXACIN LACTATE

REACTIONS (2)
  - Pancreatitis acute [Recovered/Resolved]
  - Cholecystitis [Recovered/Resolved]

NARRATIVE: CASE EVENT DATE: 20180107
